FAERS Safety Report 25861343 (Version 2)
Quarter: 2025Q4

REPORT INFORMATION
  Report Type: Spontaneous
  Country: US (occurrence: US)
  Receive Date: 20250929
  Receipt Date: 20251111
  Transmission Date: 20260119
  Serious: No
  Sender: SANDOZ
  Company Number: US-SANDOZ-SDZ2025US069711

PATIENT

DRUGS (1)
  1. ESTRADIOL [Suspect]
     Active Substance: ESTRADIOL
     Indication: Product used for unknown indication
     Dosage: 37.5 MCG / 1 10
     Route: 062

REACTIONS (2)
  - Circumstance or information capable of leading to device use error [Unknown]
  - Product physical issue [Unknown]
